FAERS Safety Report 7456219-9 (Version None)
Quarter: 2011Q2

REPORT INFORMATION
  Report Type: 
  Country: None (occurrence: None)
  Receive Date: 20110503
  Receipt Date: 20110425
  Transmission Date: 20111010
  Serious: Yes (Hospitalization)
  Sender: FDA-Public Use
  Company Number: US-ASTRAZENECA-2011SE09205

PATIENT
  Age: 63 Year
  Sex: Female
  Weight: 49.9 kg

DRUGS (2)
  1. NEXIUM [Suspect]
     Route: 048
  2. SYMBICORT [Suspect]
     Route: 055

REACTIONS (3)
  - DIARRHOEA [None]
  - DYSPNOEA [None]
  - HOSPITALISATION [None]
